FAERS Safety Report 5986355-5 (Version None)
Quarter: 2008Q4

REPORT INFORMATION
  Report Type: 
  Country: None (occurrence: None)
  Receive Date: 20081209
  Receipt Date: 20081128
  Transmission Date: 20090506
  Serious: Yes (Other)
  Sender: FDA-Public Use
  Company Number: DE-NOVOPROD-272820

PATIENT
  Sex: Female
  Weight: 24.6 kg

DRUGS (3)
  1. NORDITROPIN [Suspect]
     Indication: SMALL FOR DATES BABY
     Dosage: .9 MG, QD
     Route: 058
     Dates: start: 20070630, end: 20080101
  2. NORDITROPIN [Suspect]
     Dosage: .9 MG, QD
  3. IBUPROFEN TABLETS [Concomitant]
     Dosage: UNK, PRN
     Route: 048

REACTIONS (1)
  - OSTEOCHONDROSIS [None]
